FAERS Safety Report 14764446 (Version 1)
Quarter: 2018Q2

REPORT INFORMATION
  Report Type: Spontaneous
  Country: US (occurrence: US)
  Receive Date: 20180416
  Receipt Date: 20180416
  Transmission Date: 20180711
  Serious: Yes (Other)
  Sender: FDA-Public Use
  Company Number: US-GLENMARK PHARMACEUTICALS-2018GMK034209

PATIENT
  Age: 6 Year

DRUGS (1)
  1. FLUTICASONE PROPIONATE. [Suspect]
     Active Substance: FLUTICASONE PROPIONATE
     Indication: ASTHMA
     Dosage: 110 ?G, UNK (METERED-DOSE-INHALER)
     Route: 055

REACTIONS (2)
  - Product use issue [Unknown]
  - Cushing^s syndrome [Unknown]
